FAERS Safety Report 21028252 (Version 4)
Quarter: 2022Q3

REPORT INFORMATION
  Report Type: Report from Study
  Country: ES (occurrence: ES)
  Receive Date: 20220630
  Receipt Date: 20220805
  Transmission Date: 20221027
  Serious: Yes (Life-Threatening)
  Sender: FDA-Public Use
  Company Number: ES-NOVARTISPH-NVSC2022ES148232

PATIENT
  Age: 71 Year
  Sex: Male
  Weight: 80 kg

DRUGS (10)
  1. NIS-793 [Suspect]
     Active Substance: NIS-793
     Indication: Colorectal cancer metastatic
     Dosage: 2100 MG, Q2W
     Route: 042
     Dates: start: 20220127, end: 20220310
  2. BEVACIZUMAB [Suspect]
     Active Substance: BEVACIZUMAB
     Indication: Colorectal cancer metastatic
     Dosage: 405 MG, Q2W
     Route: 042
     Dates: start: 20220127, end: 20220310
  3. FLUOROURACIL [Suspect]
     Active Substance: FLUOROURACIL
     Indication: Colorectal cancer metastatic
     Dosage: 760 MG, Q2W
     Route: 042
     Dates: start: 20220127, end: 20220310
  4. IRINOTECAN [Suspect]
     Active Substance: IRINOTECAN
     Indication: Colorectal cancer metastatic
     Dosage: 342 MG, Q2W
     Route: 042
     Dates: start: 20220127, end: 20220310
  5. ONDANSETRON [Concomitant]
     Active Substance: ONDANSETRON
     Indication: General physical condition
     Dosage: UNK
     Route: 065
     Dates: start: 20220126
  6. MAGNESIA CINFA [Concomitant]
     Indication: Constipation
     Dosage: UNK
     Route: 065
     Dates: start: 20220209
  7. RAMIPRIL [Concomitant]
     Active Substance: RAMIPRIL
     Indication: Hypertension
     Dosage: UNK
     Route: 065
     Dates: start: 20191112, end: 20220712
  8. FLUOROURACIL\IRINOTECAN\LEUCOVORIN [Concomitant]
     Active Substance: FLUOROURACIL\IRINOTECAN\LEUCOVORIN
     Indication: Product used for unknown indication
     Dosage: UNK
     Route: 065
  9. SIMVASTATIN [Concomitant]
     Active Substance: SIMVASTATIN
     Indication: Dyslipidaemia
     Dosage: UNK
     Route: 065
     Dates: start: 20181113
  10. HYDROCHLOROTHIAZIDE [Concomitant]
     Active Substance: HYDROCHLOROTHIAZIDE
     Indication: General physical condition
     Dosage: UNK
     Route: 065
     Dates: start: 20220120, end: 20220712

REACTIONS (1)
  - Cardiac ventricular thrombosis [Not Recovered/Not Resolved]

NARRATIVE: CASE EVENT DATE: 20220318
